FAERS Safety Report 8354432-X (Version None)
Quarter: 2012Q2

REPORT INFORMATION
  Report Type: 
  Country: None (occurrence: None)
  Receive Date: 20120511
  Receipt Date: 20120427
  Transmission Date: 20120825
  Serious: Yes (Hospitalization, Other)
  Sender: FDA-Public Use
  Company Number: US-ARROW GEN-2012-07730

PATIENT
  Age: 76 Year
  Sex: Male

DRUGS (2)
  1. OLANZAPINE [Suspect]
     Indication: BIPOLAR DISORDER
     Dosage: 20-30MG/DAY
     Route: 048
  2. FLUOXETINE HYDROCHLORIDE [Suspect]
     Indication: BIPOLAR DISORDER
     Dosage: 20 MG, DAILY
     Route: 048

REACTIONS (1)
  - DELIRIUM [None]
